FAERS Safety Report 16722481 (Version 3)
Quarter: 2019Q3

REPORT INFORMATION
  Report Type: Spontaneous
  Country: PT (occurrence: PT)
  Receive Date: 20190820
  Receipt Date: 20190925
  Transmission Date: 20191005
  Serious: Yes (Other)
  Sender: FDA-Public Use
  Company Number: PHHY2019PT188928

PATIENT
  Age: 48 Year
  Sex: Female

DRUGS (27)
  1. CENTELLA ASIATICA [Interacting]
     Active Substance: CENTELLA ASIATICA
     Indication: WEIGHT DECREASED
     Dosage: UNK
     Route: 065
  2. ETHINYLESTRADIOL+GESTODENE [Interacting]
     Active Substance: ETHINYL ESTRADIOL\GESTODENE
     Indication: WEIGHT CONTROL
  3. BUPROPION. [Suspect]
     Active Substance: BUPROPION
     Indication: WEIGHT CONTROL
     Route: 065
  4. CHROMIUM PICOLINATE [Suspect]
     Active Substance: CHROMIUM PICOLINATE
     Indication: WEIGHT CONTROL
     Route: 065
  5. CHLORDIAZEPOXIDE. [Interacting]
     Active Substance: CHLORDIAZEPOXIDE
     Indication: WEIGHT CONTROL
  6. ETHINYLESTRADIOL+GESTODENE [Interacting]
     Active Substance: ETHINYL ESTRADIOL\GESTODENE
     Indication: ORAL CONTRACEPTION
     Route: 048
  7. CENTELLA ASIATICA [Interacting]
     Active Substance: CENTELLA ASIATICA
     Indication: WEIGHT CONTROL
  8. METFORMIN [Suspect]
     Active Substance: METFORMIN HYDROCHLORIDE
     Indication: WEIGHT CONTROL
  9. SENNOSIDES A+B [Interacting]
     Active Substance: SENNOSIDES A AND B
     Indication: WEIGHT CONTROL
     Route: 065
  10. METFORMIN [Suspect]
     Active Substance: METFORMIN HYDROCHLORIDE
     Indication: WEIGHT DECREASED
  11. CASCARA SAGRADA [Interacting]
     Active Substance: FRANGULA PURSHIANA BARK
     Indication: WEIGHT CONTROL
     Route: 065
  12. CHROMIUM PICOLINATE [Suspect]
     Active Substance: CHROMIUM PICOLINATE
     Indication: WEIGHT CONTROL
  13. PHENOLPHTHALEIN [Suspect]
     Active Substance: PHENOLPHTHALEIN
     Indication: WEIGHT CONTROL
  14. CASCARA SAGRADA [Interacting]
     Active Substance: FRANGULA PURSHIANA BARK
     Indication: WEIGHT CONTROL
  15. ORLISTAT. [Interacting]
     Active Substance: ORLISTAT
     Indication: WEIGHT DECREASED
  16. CHLORDIAZEPOXIDE. [Interacting]
     Active Substance: CHLORDIAZEPOXIDE
     Indication: WEIGHT CONTROL
     Route: 065
  17. FUROSEMIDE. [Interacting]
     Active Substance: FUROSEMIDE
     Indication: WEIGHT CONTROL
     Route: 065
  18. CHROMIUM PICOLINATE [Suspect]
     Active Substance: CHROMIUM PICOLINATE
     Indication: WEIGHT DECREASED
  19. PHENOLPHTHALEIN [Suspect]
     Active Substance: PHENOLPHTHALEIN
     Indication: WEIGHT CONTROL
     Route: 065
  20. PHENOLPHTHALEIN [Suspect]
     Active Substance: PHENOLPHTHALEIN
     Indication: WEIGHT DECREASED
  21. CASCARA SAGRADA [Interacting]
     Active Substance: FRANGULA PURSHIANA BARK
     Indication: WEIGHT DECREASED
     Dosage: UNK
     Route: 065
  22. CENTELLA ASIATICA [Interacting]
     Active Substance: CENTELLA ASIATICA
     Indication: WEIGHT CONTROL
     Route: 065
  23. ORLISTAT. [Interacting]
     Active Substance: ORLISTAT
     Indication: WEIGHT CONTROL
  24. CHLORDIAZEPOXIDE. [Interacting]
     Active Substance: CHLORDIAZEPOXIDE
     Indication: WEIGHT DECREASED
  25. METFORMIN [Suspect]
     Active Substance: METFORMIN HYDROCHLORIDE
     Indication: WEIGHT CONTROL
     Dosage: UNK
     Route: 065
  26. TOPIRAMATE. [Suspect]
     Active Substance: TOPIRAMATE
     Indication: WEIGHT CONTROL
     Route: 065
  27. ORLISTAT. [Interacting]
     Active Substance: ORLISTAT
     Indication: WEIGHT CONTROL
     Route: 065

REACTIONS (6)
  - Drug interaction [Unknown]
  - Headache [Unknown]
  - Product use in unapproved indication [Unknown]
  - Off label use [Unknown]
  - Cerebral venous thrombosis [Unknown]
  - Neurological symptom [Unknown]
